FAERS Safety Report 9612927 (Version 2)
Quarter: 2013Q4

REPORT INFORMATION
  Report Type: Spontaneous
  Country: IE (occurrence: IE)
  Receive Date: 20131010
  Receipt Date: 20131016
  Transmission Date: 20140711
  Serious: Yes (Other)
  Sender: FDA-Public Use
  Company Number: IE-ABBVIE-13P-229-1156043-00

PATIENT
  Age: 13 Year
  Sex: Female

DRUGS (3)
  1. EPILIM CHRONO [Suspect]
     Indication: CHOREA
     Route: 048
     Dates: start: 201303, end: 20130916
  2. EPILIM CHRONO [Suspect]
     Route: 048
     Dates: start: 20130916
  3. CORTICOSTEROIDS [Concomitant]
     Indication: PRODUCT USED FOR UNKNOWN INDICATION
     Dates: end: 201308

REACTIONS (7)
  - Hepatic lesion [Unknown]
  - Abdominal distension [Unknown]
  - Constipation [Unknown]
  - Headache [Unknown]
  - Nausea [Unknown]
  - Somnolence [Unknown]
  - Tremor [Unknown]
